FAERS Safety Report 4581361-X (Version None)
Quarter: 2005Q1

REPORT INFORMATION
  Report Type: 
  Country: None (occurrence: None)
  Receive Date: 20050214
  Receipt Date: 20041002
  Transmission Date: 20050727
  Serious: Yes (Life-Threatening, Hospitalization)
  Sender: FDA-Public Use
  Company Number: US-GLAXOSMITHKLINE-A0528563A

PATIENT
  Age: 17 Year
  Sex: Female
  Weight: 50.5 kg

DRUGS (3)
  1. LAMICTAL [Suspect]
     Indication: DRUG USE FOR UNKNOWN INDICATION
     Route: 048
  2. LITHIUM [Concomitant]
  3. ZYPREXA [Concomitant]

REACTIONS (7)
  - ERYTHEMA [None]
  - HYPERSENSITIVITY [None]
  - LYMPHADENOPATHY [None]
  - PYREXIA [None]
  - RASH MACULO-PAPULAR [None]
  - URTICARIA [None]
  - WHITE BLOOD CELL COUNT DECREASED [None]
